FAERS Safety Report 8782551 (Version 2)
Quarter: 2013Q4

REPORT INFORMATION
  Report Type: Spontaneous
  Country: FR (occurrence: FR)
  Receive Date: 20120913
  Receipt Date: 20131031
  Transmission Date: 20140711
  Serious: Yes (Other)
  Sender: FDA-Public Use
  Company Number: FR-009507513-1209FRA002099

PATIENT
  Age: 80 Year
  Sex: 0

DRUGS (8)
  1. AERIUS [Suspect]
     Indication: DERMATOSIS
     Dosage: 5 MG, QD
     Route: 048
     Dates: start: 201205, end: 20120724
  2. PARIET [Suspect]
     Dosage: 10 MG, QD
     Route: 048
     Dates: start: 201201, end: 20120721
  3. STRUCTUM [Suspect]
     Dosage: 500 MG, QD
     Route: 048
     Dates: start: 201202, end: 20120724
  4. CRESTOR [Concomitant]
  5. NOOTROPYL [Concomitant]
  6. DAFALGAN [Concomitant]
     Dosage: UNK, PRN
  7. FORLAX [Concomitant]
  8. METEOSPASMYL (ALVERINE CITRATE (+) SIMETHICONE) [Concomitant]
     Dosage: UNK, PRN

REACTIONS (1)
  - Hepatitis [Recovering/Resolving]
